FAERS Safety Report 7922914 (Version 2)
Quarter: 2012Q4

REPORT INFORMATION
  Report Type: 
  Country: US (occurrence: US)
  Receive Date: 20110429
  Receipt Date: 20121120
  Transmission Date: 20130627
  Serious: No
  Sender: FDA-Public Use
  Company Number: US-ASTRAZENECA-2010SE10138

PATIENT
  Age: 77 Year
  Sex: Female
  Weight: 38.6 kg

DRUGS (6)
  1. NEXIUM [Suspect]
     Route: 048
  2. SEROQUEL [Suspect]
     Indication: BIPOLAR DISORDER
     Route: 048
  3. SEROQUEL [Suspect]
     Indication: BIPOLAR DISORDER
     Route: 048
     Dates: end: 201012
  4. SEROQUEL [Suspect]
     Indication: BIPOLAR DISORDER
     Route: 048
     Dates: start: 201012
  5. VALIUM [Concomitant]
  6. PAIN MEDICATION (UNSPECIFIED) [Concomitant]

REACTIONS (17)
  - Limb injury [Unknown]
  - Influenza like illness [Unknown]
  - Back pain [Unknown]
  - Chronic obstructive pulmonary disease [Unknown]
  - Bronchitis chronic [Unknown]
  - Parkinson^s disease [Unknown]
  - Thyroid disorder [Unknown]
  - Dizziness [Unknown]
  - Vomiting [Unknown]
  - Insomnia [Unknown]
  - Nausea [Unknown]
  - Headache [Unknown]
  - Malaise [Unknown]
  - Therapy regimen changed [Unknown]
  - Weight increased [Unknown]
  - Hyperphagia [Unknown]
  - Drug dose omission [Unknown]
